FAERS Safety Report 11928497 (Version 2)
Quarter: 2016Q1

REPORT INFORMATION
  Report Type: Spontaneous
  Country: BR (occurrence: BR)
  Receive Date: 20160119
  Receipt Date: 20160216
  Transmission Date: 20160526
  Serious: Yes (Hospitalization, Other)
  Sender: FDA-Public Use
  Company Number: BR-PFIZER INC-2016014684

PATIENT
  Age: 14 Year
  Sex: Female

DRUGS (1)
  1. DILACORON [Suspect]
     Active Substance: VERAPAMIL HYDROCHLORIDE
     Dosage: 2400 MG (60TABLETS), UNK
     Route: 048
     Dates: start: 19780129

REACTIONS (7)
  - Suicide attempt [Recovered/Resolved]
  - Atrioventricular block complete [Recovered/Resolved]
  - Metabolic acidosis [Recovered/Resolved]
  - Hypotension [Recovered/Resolved]
  - Poisoning deliberate [Recovered/Resolved]
  - Hyperglycaemia [Recovered/Resolved]
  - Confusional state [Recovered/Resolved]
